FAERS Safety Report 5704541-6 (Version None)
Quarter: 2008Q2

REPORT INFORMATION
  Report Type: 
  Country: None (occurrence: None)
  Receive Date: 20080411
  Receipt Date: 20080411
  Transmission Date: 20081010
  Serious: Yes (Other)
  Sender: FDA-Public Use
  Company Number: None

PATIENT
  Age: 42 Year
  Sex: Female
  Weight: 65.7716 kg

DRUGS (1)
  1. TOPAMAX [Suspect]
     Indication: MIGRAINE
     Dosage: 150 DAILY PO
     Route: 048
     Dates: start: 20070120, end: 20080410

REACTIONS (3)
  - ANHIDROSIS [None]
  - BURNING SENSATION [None]
  - HEAT RASH [None]
